FAERS Safety Report 12827191 (Version 1)
Quarter: 2016Q4

REPORT INFORMATION
  Report Type: Spontaneous
  Country: US (occurrence: US)
  Receive Date: 20161007
  Receipt Date: 20161007
  Transmission Date: 20170207
  Serious: No
  Sender: FDA-Public Use
  Company Number: US-INDIVIOR LIMITED-INDV-086500-2015

PATIENT
  Age: 54 Year
  Sex: Female

DRUGS (3)
  1. SUBOXONE [Suspect]
     Active Substance: BUPRENORPHINE HYDROCHLORIDE\NALOXONE HYDROCHLORIDE
     Indication: PAIN
     Dosage: 8 MG OVER THE COURSE OF EACH DAY
     Route: 060
  2. ZUBSOLV [Suspect]
     Active Substance: BUPRENORPHINE HYDROCHLORIDE\NALOXONE HYDROCHLORIDE
     Indication: PAIN
     Dosage: UNKNOWN, DAILY FOR ONE MONTH
     Route: 060
  3. BUTRANS [Suspect]
     Active Substance: BUPRENORPHINE
     Indication: PAIN
     Dosage: UNKNOWN, DAILY
     Route: 062

REACTIONS (6)
  - Pre-existing condition improved [Recovered/Resolved]
  - Fatigue [Recovered/Resolved]
  - Intentional product misuse [Recovered/Resolved]
  - Product preparation error [Recovered/Resolved]
  - Off label use [Recovered/Resolved]
  - Malaise [Recovered/Resolved]
